FAERS Safety Report 5574740-5 (Version None)
Quarter: 2007Q4

REPORT INFORMATION
  Report Type: 
  Country: None (occurrence: None)
  Receive Date: 20071226
  Receipt Date: 20071226
  Transmission Date: 20080405
  Serious: No
  Sender: FDA-Public Use
  Company Number: None

PATIENT
  Age: 68 Year
  Sex: Female
  Weight: 52.3 kg

DRUGS (1)
  1. DOCETAXEL [Suspect]
     Indication: CHEMOTHERAPY
     Dosage: 89MG X1 DOSE IV
     Route: 042
     Dates: start: 20071217

REACTIONS (3)
  - DYSPNOEA [None]
  - FLUSHING [None]
  - INFUSION RELATED REACTION [None]
